FAERS Safety Report 20801320 (Version 3)
Quarter: 2022Q2

REPORT INFORMATION
  Report Type: Spontaneous
  Country: DE (occurrence: None)
  Receive Date: 20220509
  Receipt Date: 20220629
  Transmission Date: 20220721
  Serious: Yes (Other)
  Sender: FDA-Public Use
  Company Number: DE-ROCHE-3092661

PATIENT
  Sex: Female

DRUGS (5)
  1. TECENTRIQ [Suspect]
     Active Substance: ATEZOLIZUMAB
     Indication: Transitional cell carcinoma
     Route: 041
     Dates: start: 20201204, end: 20220211
  2. CORTISONE [Suspect]
     Active Substance: CORTISONE
     Indication: Diabetes mellitus
     Route: 065
  3. CHOLECALCIFEROL [Concomitant]
     Active Substance: CHOLECALCIFEROL
     Dosage: 2000 UNIT NOT REPORTED
  4. MARCUMAR [Concomitant]
     Active Substance: PHENPROCOUMON
  5. FERROUS SULFATE [Concomitant]
     Active Substance: FERROUS SULFATE

REACTIONS (2)
  - Pancreatitis [Recovering/Resolving]
  - Diabetes mellitus [Recovering/Resolving]
